FAERS Safety Report 8299380-9 (Version None)
Quarter: 2012Q2

REPORT INFORMATION
  Report Type: 
  Country: None (occurrence: None)
  Receive Date: 20120419
  Receipt Date: 20120410
  Transmission Date: 20120825
  Serious: Yes (Other)
  Sender: FDA-Public Use
  Company Number: CA-PFIZER INC-2012043130

PATIENT
  Age: 51 Year
  Sex: Male

DRUGS (3)
  1. MS CONTIN [Suspect]
     Indication: BACK PAIN
  2. MS CONTIN [Suspect]
     Indication: PAIN
     Dosage: 60 MG, 2X/DAY
     Route: 048
     Dates: start: 20020101
  3. MS CONTIN [Suspect]
     Indication: NECK PAIN

REACTIONS (23)
  - JOINT SWELLING [None]
  - GENERAL PHYSICAL HEALTH DETERIORATION [None]
  - DISTURBANCE IN ATTENTION [None]
  - PALPITATIONS [None]
  - HYPOPNOEA [None]
  - MENTAL IMPAIRMENT [None]
  - MOBILITY DECREASED [None]
  - ERUCTATION [None]
  - ABDOMINAL DISCOMFORT [None]
  - ASTHENIA [None]
  - DRUG INEFFECTIVE [None]
  - DEMENTIA [None]
  - NAUSEA [None]
  - GOUT [None]
  - RETCHING [None]
  - HYPERSENSITIVITY [None]
  - HEADACHE [None]
  - PAIN [None]
  - DYSGEUSIA [None]
  - ARTHRALGIA [None]
  - EYE PAIN [None]
  - EMOTIONAL DISTRESS [None]
  - VOMITING [None]
